FAERS Safety Report 16191116 (Version 1)
Quarter: 2019Q2

REPORT INFORMATION
  Report Type: Spontaneous
  Country: NL (occurrence: DE)
  Receive Date: 20190412
  Receipt Date: 20190412
  Transmission Date: 20190711
  Serious: Yes (Other)
  Sender: FDA-Public Use
  Company Number: DE-FRESENIUS KABI-FK201903693

PATIENT
  Sex: Male

DRUGS (2)
  1. GEMCITABINE [Suspect]
     Active Substance: GEMCITABINE\GEMCITABINE HYDROCHLORIDE
     Indication: CHEMOTHERAPY
     Dosage: INFUSIONS IN NOV-2018 AND DEC-2018, ON 02-JAN-2019, ON 09-JAN-2019, LAST INFUSION: 06-FEB-2019
     Route: 065
     Dates: start: 201811
  2. DARBEPOETIN ALFA [Concomitant]
     Active Substance: DARBEPOETIN ALFA
     Indication: BLOOD COUNT ABNORMAL
     Route: 065

REACTIONS (1)
  - Blindness [Not Recovered/Not Resolved]
